FAERS Safety Report 7086647-5 (Version None)
Quarter: 2010Q4

REPORT INFORMATION
  Report Type: 
  Country: None (occurrence: None)
  Receive Date: 20101105
  Receipt Date: 20101028
  Transmission Date: 20110411
  Serious: Yes (Hospitalization, Other)
  Sender: FDA-Public Use
  Company Number: JP-ABBOTT-10P-087-0671610-00

PATIENT
  Sex: Female
  Weight: 43 kg

DRUGS (6)
  1. HUMIRA [Suspect]
     Indication: PSORIASIS
     Route: 058
     Dates: start: 20100304, end: 20100304
  2. HUMIRA [Suspect]
     Route: 058
     Dates: start: 20100318, end: 20100902
  3. CYCLOSPORINE [Concomitant]
     Indication: PRODUCT USED FOR UNKNOWN INDICATION
     Dosage: 3 MG/KG/DAY
  4. MAXACALCITOL [Concomitant]
     Indication: PSORIASIS
  5. CLOBETASOL PROPIONATE [Concomitant]
     Indication: PSORIASIS
  6. BETAMETHASONE BUTYRATE PROPIONATE [Concomitant]
     Indication: PSORIASIS

REACTIONS (4)
  - C-REACTIVE PROTEIN INCREASED [None]
  - PUSTULAR PSORIASIS [None]
  - PYREXIA [None]
  - RASH PUSTULAR [None]
